FAERS Safety Report 9411936 (Version 1)
Quarter: 2013Q3

REPORT INFORMATION
  Report Type: Spontaneous
  Country: US (occurrence: None)
  Receive Date: 20130719
  Receipt Date: 20130719
  Transmission Date: 20140515
  Serious: Yes (Congenital Anomaly)
  Sender: FDA-Public Use
  Company Number: None

PATIENT
  Age: 46 Year
  Sex: Female
  Weight: 156 kg

DRUGS (2)
  1. ZOSYN [Suspect]
     Route: 042
     Dates: start: 20130712, end: 20130713
  2. VANCOMYCIN [Suspect]
     Route: 042
     Dates: start: 20130711, end: 20130713

REACTIONS (1)
  - Blood creatinine increased [None]
